FAERS Safety Report 8592900-6 (Version None)
Quarter: 2012Q3

REPORT INFORMATION
  Report Type: 
  Country: None (occurrence: None)
  Receive Date: 20120814
  Receipt Date: 20120718
  Transmission Date: 20120928
  Serious: Yes (Other)
  Sender: FDA-Public Use
  Company Number: JP-009507513-1208JPN005599

PATIENT

DRUGS (13)
  1. REBETOL [Suspect]
     Indication: HEPATITIS C
     Route: 048
     Dates: start: 20120410, end: 20120501
  2. TELAVIC [Suspect]
     Dosage: 2250 MG, ONCE
     Route: 048
     Dates: start: 20120604
  3. TELAVIC [Suspect]
     Indication: HEPATITIS C
     Route: 048
     Dates: start: 20120410
  4. TOUGHMAC E [Concomitant]
     Indication: PROPHYLAXIS
     Route: 048
     Dates: start: 20120410
  5. REBETOL [Suspect]
     Route: 048
     Dates: start: 20120502
  6. TELAVIC [Suspect]
     Dosage: 1500 MG, ONCE
     Route: 048
     Dates: end: 20120603
  7. BASEN [Concomitant]
     Indication: DIABETES MELLITUS
     Route: 048
  8. JANUVIA [Concomitant]
     Indication: DIABETES MELLITUS
     Route: 048
  9. NEXIUM [Concomitant]
     Indication: PROPHYLAXIS
     Route: 048
     Dates: start: 20120620
  10. HUMALOG NPL [Concomitant]
     Indication: DIABETES MELLITUS
     Route: 058
  11. PEG-INTRON [Suspect]
     Indication: HEPATITIS C
     Dosage: 1.5MCG/KG/WEEK
     Route: 058
  12. HUMALOG [Concomitant]
     Indication: DIABETES MELLITUS
     Route: 058
  13. PROMAC (POLAPREZINC) [Concomitant]
     Indication: PROPHYLAXIS
     Route: 048
     Dates: start: 20120410

REACTIONS (1)
  - RASH [None]
